FAERS Safety Report 14730986 (Version 1)
Quarter: 2018Q2

REPORT INFORMATION
  Report Type: Report from Study
  Country: CO (occurrence: CO)
  Receive Date: 20180406
  Receipt Date: 20180406
  Transmission Date: 20180711
  Serious: Yes (Hospitalization, Other)
  Sender: FDA-Public Use
  Company Number: CO-ELI_LILLY_AND_COMPANY-CO201804002171

PATIENT
  Age: 57 Year
  Sex: Male

DRUGS (2)
  1. CETUXIMAB. [Suspect]
     Active Substance: CETUXIMAB
     Indication: COLORECTAL CANCER
     Dosage: 900 MG/M2, 2/M
     Route: 042
     Dates: start: 20170418
  2. NOVOLIN R [Concomitant]
     Active Substance: INSULIN HUMAN
     Indication: DIABETES MELLITUS
     Dosage: 26 UNITS

REACTIONS (8)
  - Off label use [Unknown]
  - Decreased appetite [Unknown]
  - Kidney infection [Unknown]
  - Jaundice [Unknown]
  - Post procedural haemorrhage [Unknown]
  - Asthenia [Unknown]
  - Post procedural bile leak [Unknown]
  - Wound [Unknown]

NARRATIVE: CASE EVENT DATE: 201802
